FAERS Safety Report 8304468-X (Version None)
Quarter: 2012Q2

REPORT INFORMATION
  Report Type: 
  Country: None (occurrence: None)
  Receive Date: 20120423
  Receipt Date: 20120411
  Transmission Date: 20120825
  Serious: Yes (Other)
  Sender: FDA-Public Use
  Company Number: JP-UCBSA-053524

PATIENT
  Age: 53 Year
  Sex: Female
  Weight: 46.2 kg

DRUGS (8)
  1. ACTOS [Suspect]
     Route: 042
     Dates: start: 20120229, end: 20120308
  2. GLUCONSAN K [Concomitant]
     Indication: HYPOKALAEMIA
     Dosage: DAILY DOSE:24 MEQ
     Route: 048
     Dates: start: 20120307, end: 20120321
  3. LANSOPRAZOLE [Concomitant]
  4. TEGRETOL [Concomitant]
     Dosage: DAILY DOSE:100 MG
     Route: 048
     Dates: start: 20120305, end: 20120325
  5. MIDAZOLAM HCL [Concomitant]
     Route: 042
  6. PHENYTOIN SODIUM CAP [Concomitant]
     Dosage: DAILY DOSE: 500 MG
     Route: 042
     Dates: start: 20120305, end: 20120306
  7. KEPPRA [Suspect]
     Route: 048
     Dates: start: 20120306, end: 20120312
  8. ACTOS [Suspect]
     Route: 042
     Dates: start: 20120308, end: 20120312

REACTIONS (1)
  - HAEMATURIA [None]
